FAERS Safety Report 4355214-6 (Version None)
Quarter: 2004Q2

REPORT INFORMATION
  Report Type: 
  Country: None (occurrence: None)
  Receive Date: 20040504
  Receipt Date: 20040426
  Transmission Date: 20050107
  Serious: Yes (Hospitalization)
  Sender: FDA-Public Use
  Company Number: K200400638

PATIENT
  Age: 4 Year
  Sex: Female

DRUGS (1)
  1. QUIBRON [Suspect]

REACTIONS (3)
  - COMA [None]
  - TEMPORAL LOBE EPILEPSY [None]
  - TONIC CONVULSION [None]
